FAERS Safety Report 19735576 (Version 3)
Quarter: 2021Q4

REPORT INFORMATION
  Report Type: Spontaneous
  Country: NL (occurrence: NL)
  Receive Date: 20210824
  Receipt Date: 20211221
  Transmission Date: 20220304
  Serious: Yes (Hospitalization, Other)
  Sender: FDA-Public Use
  Company Number: NL-AUROBINDO-AUR-APL-2021-035506

PATIENT
  Age: 75 Year
  Sex: Male

DRUGS (13)
  1. CLOZAPINE [Suspect]
     Active Substance: CLOZAPINE
     Indication: Neuropsychiatric symptoms
     Dosage: 12.5 MILLIGRAM, ONCE A DAY
     Route: 065
  2. CLOZAPINE [Suspect]
     Active Substance: CLOZAPINE
     Indication: Dementia
     Dosage: 12.5 MILLIGRAM, TWO TIMES A DAY (25MG ONCE DAILY)
     Route: 065
  3. CLOZAPINE [Suspect]
     Active Substance: CLOZAPINE
     Dosage: 25 MILLIGRAM, ONCE A DAY (12.5 MG TWICE DAILY)
  4. QUETIAPINE [Suspect]
     Active Substance: QUETIAPINE
     Indication: Behaviour disorder
     Dosage: 50 MILLIGRAM, ONCE A DAY
     Route: 065
  5. VALPROIC ACID [Concomitant]
     Active Substance: VALPROIC ACID
     Indication: Behaviour disorder
     Dosage: 600 MILLIGRAM, ONCE A DAY (300 MILLIGRAM, BID (600 MG)
     Route: 065
  6. CITALOPRAM [Concomitant]
     Active Substance: CITALOPRAM HYDROBROMIDE
     Indication: Behaviour disorder
     Dosage: 20 MILLIGRAM, ONCE A DAY
     Route: 065
  7. OXAZEPAM [Concomitant]
     Active Substance: OXAZEPAM
     Indication: Behaviour disorder
     Dosage: 30 MILLIGRAM, ONCE A DAY (30 MILLIGRAM DAILY; THREE TIMES/DAY)
     Route: 065
  8. ALPRAZOLAM [Concomitant]
     Active Substance: ALPRAZOLAM
     Indication: Behaviour disorder
     Dosage: 1.5 MILLIGRAM, ONCE A DAY (0.5 MILLIGRAM, TID)
     Route: 065
  9. MIDAZOLAM [Concomitant]
     Active Substance: MIDAZOLAM
     Indication: Behaviour disorder
     Dosage: 7.5 MILLIGRAM
     Route: 065
  10. MIDAZOLAM [Concomitant]
     Active Substance: MIDAZOLAM
     Dosage: 7.1 MILLIGRAM, ONCE A DAY
     Route: 045
  11. LORAZEPAM [Concomitant]
     Active Substance: LORAZEPAM
     Indication: Psychotherapy
     Dosage: 2.5 MILLIGRAM
     Route: 065
  12. LORAZEPAM [Concomitant]
     Active Substance: LORAZEPAM
     Indication: Behaviour disorder
  13. MIDAZOLAM [Concomitant]
     Active Substance: MIDAZOLAM
     Indication: Behaviour disorder
     Dosage: UNK
     Route: 065

REACTIONS (3)
  - Hepatic enzyme abnormal [Unknown]
  - Drug ineffective [Unknown]
  - Off label use [Unknown]
